FAERS Safety Report 24688754 (Version 7)
Quarter: 2024Q4

REPORT INFORMATION
  Report Type: Spontaneous
  Country: US (occurrence: US)
  Receive Date: 20241203
  Receipt Date: 20241230
  Transmission Date: 20250114
  Serious: Yes (Other)
  Sender: PFIZER
  Company Number: US-BRISTOL-MYERS SQUIBB COMPANY-2024-183768

PATIENT
  Age: 82 Year
  Sex: Male
  Weight: 98.2 kg

DRUGS (6)
  1. ELIQUIS [Suspect]
     Active Substance: APIXABAN
     Indication: Atrial fibrillation
     Dosage: TAKE 2.5 MG BY MOUTH EVERY 12 HOURS
     Route: 048
  2. VYNDAMAX [Suspect]
     Active Substance: TAFAMIDIS
     Indication: Cardiac failure chronic
     Dosage: TAKE 1 CAPSULE BY MOUTH EVERY MORNING
     Route: 048
  3. INSPRA [Concomitant]
     Active Substance: EPLERENONE
     Dosage: 25 MG IN THE MORNING AND 25 MG IN THE EVENING
     Route: 048
  4. CRESTOR [Concomitant]
     Active Substance: ROSUVASTATIN CALCIUM
     Dosage: IN THE MORNING AND 25 MG IN THE EVENING
     Route: 048
  5. CRESTOR [Concomitant]
     Active Substance: ROSUVASTATIN CALCIUM
     Dosage: IN THE MORNING AND 25 MG IN THE EVENING
     Route: 048
  6. CRESTOR [Concomitant]
     Active Substance: ROSUVASTATIN CALCIUM
     Dosage: TAKE 40 MG BY MOUTH DAILY
     Route: 048

REACTIONS (11)
  - Prostatic disorder [Unknown]
  - Left ventricular failure [Unknown]
  - Interstitial lung disease [Unknown]
  - Cardiac failure high output [Unknown]
  - Mobility decreased [Unknown]
  - Emphysema [Unknown]
  - Brain natriuretic peptide increased [Unknown]
  - Diastolic dysfunction [Unknown]
  - Fibrosis [Unknown]
  - Fatigue [Unknown]
  - Weight increased [Unknown]
